FAERS Safety Report 8072001-6 (Version None)
Quarter: 2012Q1

REPORT INFORMATION
  Report Type: 
  Country: None (occurrence: None)
  Receive Date: 20120119
  Receipt Date: 20120105
  Transmission Date: 20120608
  Serious: Yes (Hospitalization)
  Sender: FDA-Public Use
  Company Number: 2012GB0006

PATIENT
  Age: 60 Year
  Sex: Male

DRUGS (9)
  1. PREDNISOLONE [Suspect]
     Indication: SCHNITZLER'S SYNDROME
     Route: 048
  2. ROSUVASTATIN [Concomitant]
  3. ALENDRONIC ACID [Concomitant]
  4. CITALOPRAM HYDROBROMIDE [Concomitant]
  5. OMEPRAZOLE [Concomitant]
  6. CEPHALEXIN [Concomitant]
  7. METRONIDAZOLE [Concomitant]
  8. PIOGLITAZONE [Concomitant]
  9. KINERET [Suspect]
     Indication: SCHNITZLER'S SYNDROME
     Dosage: (100 MG)
     Route: 058

REACTIONS (3)
  - HEPATITIS ACUTE [None]
  - DISEASE RECURRENCE [None]
  - PANCREATITIS [None]
